FAERS Safety Report 8506872-3 (Version None)
Quarter: 2012Q3

REPORT INFORMATION
  Report Type: 
  Country: None (occurrence: None)
  Receive Date: 20120712
  Receipt Date: 20120706
  Transmission Date: 20120928
  Serious: No
  Sender: FDA-Public Use
  Company Number: US-PFIZER INC-2012124761

PATIENT
  Sex: Female
  Weight: 76.2 kg

DRUGS (6)
  1. CORGARD [Concomitant]
     Indication: PALPITATIONS
     Dosage: 40 MG, 1X/DAY
  2. PREMARIN [Suspect]
     Indication: SMEAR CERVIX ABNORMAL
  3. AVAPRO [Concomitant]
     Indication: HYPERTENSION
     Dosage: 150 MG, 1X/DAY
  4. PREMARIN [Suspect]
     Indication: OFF LABEL USE
     Dosage: UNK, 2X/WEEK
     Route: 067
     Dates: start: 20120419
  5. METHOTREXATE [Concomitant]
     Indication: RHEUMATOID ARTHRITIS
     Dosage: 2.5 MG, WEEKLY
  6. PREMARIN [Suspect]
     Indication: ATROPHIC VULVOVAGINITIS

REACTIONS (1)
  - VAGINAL DISCHARGE [None]
